FAERS Safety Report 4534636-4 (Version None)
Quarter: 2004Q4

REPORT INFORMATION
  Report Type: 
  Country: None (occurrence: None)
  Receive Date: 20041222
  Receipt Date: 20041202
  Transmission Date: 20050328
  Serious: Yes (Death, Life-Threatening, Other)
  Sender: FDA-Public Use
  Company Number: GB-JNJFOC-20041200777

PATIENT
  Sex: Male
  Weight: 69 kg

DRUGS (6)
  1. REMICADE [Suspect]
     Indication: RHEUMATOID ARTHRITIS
     Route: 042
  2. METHOTREXATE [Concomitant]
  3. PREDNISOLONE [Concomitant]
  4. RISEDRONATE [Concomitant]
  5. CALCICHEW [Concomitant]
  6. ARCOXIA [Concomitant]

REACTIONS (2)
  - HEPATIC FAILURE [None]
  - PANCREATIC CARCINOMA METASTATIC [None]
